FAERS Safety Report 4598624-4 (Version None)
Quarter: 2005Q1

REPORT INFORMATION
  Report Type: 
  Country: None (occurrence: None)
  Receive Date: 20050207
  Receipt Date: 20040802
  Transmission Date: 20050727
  Serious: Yes (Other)
  Sender: FDA-Public Use
  Company Number: PROG00204002591

PATIENT
  Age: 57 Year
  Sex: Female

DRUGS (3)
  1. PROMETRIUM [Suspect]
     Indication: HORMONE REPLACEMENT THERAPY
     Dosage: DAILY ORAL
     Route: 048
     Dates: start: 20010501, end: 20031001
  2. ESTRACE [Suspect]
     Indication: HORMONE REPLACEMENT THERAPY
     Dosage: DAILY ORAL
     Route: 048
  3. ESTRADIOL [Suspect]
     Indication: HORMONE REPLACEMENT THERAPY
     Dosage: DAILY ORAL
     Route: 048
     Dates: start: 20010501, end: 20031001

REACTIONS (1)
  - BREAST CANCER [None]
